FAERS Safety Report 6264073-6 (Version None)
Quarter: 2009Q3

REPORT INFORMATION
  Report Type: 
  Country: None (occurrence: None)
  Receive Date: 20090708
  Receipt Date: 20090708
  Transmission Date: 20100115
  Serious: Yes (Other)
  Sender: FDA-Public Use
  Company Number: None

PATIENT
  Age: 53 Year
  Sex: Female
  Weight: 92.5338 kg

DRUGS (1)
  1. ZICAM SPRAY [Suspect]
     Indication: NASOPHARYNGITIS
     Dates: start: 20081201, end: 20081206

REACTIONS (3)
  - ANOSMIA [None]
  - HYPOGEUSIA [None]
  - SHOCK [None]
